FAERS Safety Report 24565066 (Version 1)
Quarter: 2024Q4

REPORT INFORMATION
  Report Type: Spontaneous
  Country: CA (occurrence: CA)
  Receive Date: 20241030
  Receipt Date: 20241030
  Transmission Date: 20250115
  Serious: Yes (Other)
  Sender: CHEPLAPHARM
  Company Number: CA-ELI_LILLY_AND_COMPANY-CA202410012982

PATIENT
  Sex: Male

DRUGS (5)
  1. OLANZAPINE [Suspect]
     Active Substance: OLANZAPINE
     Indication: Product used for unknown indication
  2. ABILIFY [Suspect]
     Active Substance: ARIPIPRAZOLE
     Indication: Blood prolactin increased
     Dosage: DAILY DOSE: 2 MILLIGRAM
  3. ABILIFY [Suspect]
     Active Substance: ARIPIPRAZOLE
     Indication: Blood prolactin increased
     Dosage: ABILIFY MAINTENA KIT
  4. ABILIFY [Suspect]
     Active Substance: ARIPIPRAZOLE
     Indication: Blood prolactin increased
  5. PALIPERIDONE PALMITATE [Suspect]
     Active Substance: PALIPERIDONE PALMITATE
     Indication: Product used for unknown indication

REACTIONS (11)
  - Bruxism [Recovering/Resolving]
  - Communication disorder [Recovering/Resolving]
  - Eye discharge [Recovering/Resolving]
  - Hallucination, auditory [Recovering/Resolving]
  - Laryngitis [Recovering/Resolving]
  - Mastication disorder [Recovering/Resolving]
  - Photopsia [Recovering/Resolving]
  - Speech disorder [Recovering/Resolving]
  - Tendon disorder [Recovering/Resolving]
  - Overdose [Recovering/Resolving]
  - Agitation [Recovering/Resolving]
